FAERS Safety Report 6726716-X (Version None)
Quarter: 2010Q2

REPORT INFORMATION
  Report Type: 
  Country: None (occurrence: None)
  Receive Date: 20100514
  Receipt Date: 20100504
  Transmission Date: 20101027
  Serious: Yes (Other)
  Sender: FDA-Public Use
  Company Number: US-JNJFOC-20100305896

PATIENT
  Sex: Female

DRUGS (2)
  1. TYLENOL (CAPLET) [Suspect]
  2. TYLENOL (CAPLET) [Suspect]
     Indication: ARTHRALGIA

REACTIONS (4)
  - INTENTIONAL DRUG MISUSE [None]
  - LIP PAIN [None]
  - OVERDOSE [None]
  - PRECANCEROUS CELLS PRESENT [None]
